FAERS Safety Report 23227354 (Version 1)
Quarter: 2023Q4

REPORT INFORMATION
  Report Type: Spontaneous
  Country: US (occurrence: US)
  Receive Date: 20231124
  Receipt Date: 20231124
  Transmission Date: 20240110
  Serious: No
  Sender: FDA-Public Use
  Company Number: US-TEVA-2023-US-2945990

PATIENT
  Age: 61 Year
  Sex: Female

DRUGS (2)
  1. UZEDY [Suspect]
     Active Substance: RISPERIDONE
     Indication: Schizophrenia
     Dosage: STRENGTH:125/0.35 MG/ML;125 MG MONTHLY
     Route: 065
     Dates: start: 202307
  2. UZEDY [Suspect]
     Active Substance: RISPERIDONE
     Dosage: 100/0.28 MG/ML   ;100 MG MONTHLY
     Route: 065
     Dates: start: 2023

REACTIONS (1)
  - Somnolence [Not Recovered/Not Resolved]

NARRATIVE: CASE EVENT DATE: 20230101
